FAERS Safety Report 5155102-1 (Version None)
Quarter: 2006Q4

REPORT INFORMATION
  Report Type: 
  Country: None (occurrence: None)
  Receive Date: 20061121
  Receipt Date: 20061109
  Transmission Date: 20070319
  Serious: Yes (Other)
  Sender: FDA-Public Use
  Company Number: GBWYE484609NOV06

PATIENT
  Age: 32 Year
  Sex: Male
  Weight: 65 kg

DRUGS (10)
  1. ENBREL [Suspect]
     Indication: ANKYLOSING SPONDYLITIS
     Route: 058
     Dates: start: 20041101, end: 20060601
  2. ENBREL [Suspect]
     Indication: ARTHRITIS
  3. LEVOTHYROXINE SODIUM [Concomitant]
     Indication: HYPOTHYROIDISM
     Dosage: 200UG FREQUENCY UNSPECIFIED
     Route: 048
  4. METHOTREXATE [Concomitant]
     Indication: ANKYLOSING SPONDYLITIS
     Route: 058
  5. METHOTREXATE [Concomitant]
     Indication: ARTHRITIS
  6. ACETAMINOPHEN [Concomitant]
     Dosage: UNKNOWN
     Route: 065
  7. DICLOFENAC SODIUM [Concomitant]
     Indication: ANKYLOSING SPONDYLITIS
     Dosage: 75MG FREQUENCY UNSPECIFIED
     Route: 048
  8. DICLOFENAC SODIUM [Concomitant]
     Indication: ARTHRITIS
  9. FOLIC ACID [Concomitant]
     Indication: ANKYLOSING SPONDYLITIS
     Route: 048
  10. FOLIC ACID [Concomitant]
     Indication: ARTHRITIS

REACTIONS (2)
  - CONDITION AGGRAVATED [None]
  - UVEITIS [None]
